FAERS Safety Report 5264490-7 (Version None)
Quarter: 2007Q1

REPORT INFORMATION
  Report Type: 
  Country: None (occurrence: None)
  Receive Date: 20070309
  Receipt Date: 20070301
  Transmission Date: 20070707
  Serious: Yes (Hospitalization)
  Sender: FDA-Public Use
  Company Number: 15801

PATIENT
  Age: 56 Year
  Sex: Male

DRUGS (5)
  1. FLUOROURACIL [Suspect]
     Indication: COLORECTAL CANCER METASTATIC
     Dosage: 816 MG FORTNIGHTLY PU
     Dates: start: 20061208
  2. FLUOROURACIL [Suspect]
     Indication: COLORECTAL CANCER METASTATIC
     Dosage: 5712 MG PER_CYCLE IV
     Route: 042
     Dates: start: 20061208
  3. LEUCOVORIN CALCIUM [Suspect]
     Dosage: 816 MG FORTNIGHTLY PU
     Dates: start: 20061208
  4. OXALIPLATIN [Suspect]
     Indication: COLORECTAL CANCER METASTATIC
     Dosage: 85 MG FORTNIGHTL PI
     Dates: start: 20061208
  5. BEVACIZUMAB [Suspect]
     Indication: COLORECTAL CANCER METASTATIC
     Dosage: 420 MG FORTNIGHTLY PU
     Dates: start: 20061208

REACTIONS (2)
  - GASTROENTERITIS [None]
  - SMALL INTESTINAL OBSTRUCTION [None]
